FAERS Safety Report 15960231 (Version 1)
Quarter: 2019Q1

REPORT INFORMATION
  Report Type: Spontaneous
  Country: US (occurrence: US)
  Receive Date: 20190214
  Receipt Date: 20190214
  Transmission Date: 20190417
  Serious: No
  Sender: FDA-Public Use
  Company Number: US-ROCHE-2187772

PATIENT
  Age: 67 Year
  Sex: Male
  Weight: 85.81 kg

DRUGS (9)
  1. ERIVEDGE [Suspect]
     Active Substance: VISMODEGIB
     Dosage: ONGOING: YES
     Route: 048
     Dates: start: 201809
  2. OMEPRAZOLE. [Concomitant]
     Active Substance: OMEPRAZOLE
     Indication: GASTROOESOPHAGEAL REFLUX DISEASE
     Dosage: STARTED COUPLE OF YEARS AGO
     Route: 048
  3. FLUOXETINE [Concomitant]
     Active Substance: FLUOXETINE HYDROCHLORIDE
     Indication: DEPRESSION
     Dosage: STARTED A LITTLE LESS THAN A YEAR AGO
     Route: 048
  4. FLOMAX [Concomitant]
     Active Substance: TAMSULOSIN HYDROCHLORIDE
     Dosage: 2 PILLS IN MORNING AND 1 PILL AT NIGHT
     Route: 048
     Dates: start: 2017
  5. LEVOTHYROXIN [Concomitant]
     Active Substance: LEVOTHYROXINE
     Indication: HYPOTHYROIDISM
     Dosage: STARTED ABOUT 1 YEAR AGO
     Route: 048
     Dates: start: 2017
  6. ALLEGRA [Concomitant]
     Active Substance: FEXOFENADINE HYDROCHLORIDE
     Indication: ALLERGY TO ANIMAL
     Dosage: STARTED COUPLE OF YEARS AGO
     Route: 048
  7. ERIVEDGE [Suspect]
     Active Substance: VISMODEGIB
     Indication: BASAL CELL CARCINOMA
     Route: 048
     Dates: start: 20180914
  8. MELOXICAM. [Concomitant]
     Active Substance: MELOXICAM
     Indication: PAIN
     Dosage: STARTED COUPLE OF YEARS AGO
     Route: 048
  9. LIPITOR [Concomitant]
     Active Substance: ATORVASTATIN CALCIUM
     Indication: BLOOD CHOLESTEROL INCREASED
     Dosage: STARTED 6 MONTHS AGO
     Route: 048
     Dates: start: 2018

REACTIONS (3)
  - Pain in extremity [Unknown]
  - Pain [Not Recovered/Not Resolved]
  - Muscle spasms [Recovered/Resolved]

NARRATIVE: CASE EVENT DATE: 20180918
